FAERS Safety Report 5934340-1 (Version None)
Quarter: 2008Q4

REPORT INFORMATION
  Report Type: 
  Country: None (occurrence: None)
  Receive Date: 20081029
  Receipt Date: 20081021
  Transmission Date: 20090506
  Serious: Yes (Hospitalization, Other)
  Sender: FDA-Public Use
  Company Number: PHEH2008US09494

PATIENT
  Sex: Female

DRUGS (3)
  1. TOBI [Suspect]
     Indication: PSEUDOMONAS INFECTION
     Dosage: 7.5 ML, QD
     Dates: start: 20020101, end: 20080801
  2. TOBI [Suspect]
     Indication: MYCOBACTERIUM AVIUM COMPLEX INFECTION
  3. AVELOX [Suspect]

REACTIONS (7)
  - BRONCHIECTASIS [None]
  - DRUG INTOLERANCE [None]
  - HYPONATRAEMIA [None]
  - NAUSEA [None]
  - PSEUDOMONAS INFECTION [None]
  - SPUTUM TEST [None]
  - VOMITING [None]
